FAERS Safety Report 8060060-6 (Version None)
Quarter: 2012Q1

REPORT INFORMATION
  Report Type: 
  Country: None (occurrence: None)
  Receive Date: 20120120
  Receipt Date: 20120119
  Transmission Date: 20120608
  Serious: No
  Sender: FDA-Public Use
  Company Number: US-BAYER-2012-006158

PATIENT
  Age: 74 Year
  Sex: Male

DRUGS (5)
  1. NORVASC [Concomitant]
  2. TRAVATAN [Concomitant]
  3. AMLODIPINE [Concomitant]
  4. LEVOBUNOLOL HCL [Concomitant]
  5. LEVITRA [Suspect]
     Indication: ERECTILE DYSFUNCTION
     Dosage: 20 MG, QD
     Route: 048
     Dates: start: 20090101

REACTIONS (2)
  - BLOOD PRESSURE SYSTOLIC INCREASED [None]
  - BLOOD PRESSURE FLUCTUATION [None]
